FAERS Safety Report 6466687-7 (Version None)
Quarter: 2009Q4

REPORT INFORMATION
  Report Type: 
  Country: None (occurrence: None)
  Receive Date: 20091201
  Receipt Date: 20091201
  Transmission Date: 20100525
  Serious: Yes (Hospitalization)
  Sender: FDA-Public Use
  Company Number: None

PATIENT
  Age: 52 Year
  Sex: Female
  Weight: 45.3597 kg

DRUGS (3)
  1. RECLAST [Suspect]
     Indication: OSTEOPENIA
     Dosage: 1 PER YEAR
     Dates: start: 20091118, end: 20091118
  2. SYNTHROID [Concomitant]
  3. CHOLESTYRAMINE [Concomitant]

REACTIONS (7)
  - BACK PAIN [None]
  - BONE PAIN [None]
  - HEADACHE [None]
  - NAUSEA [None]
  - NECK PAIN [None]
  - PAIN IN JAW [None]
  - SYNCOPE [None]
